FAERS Safety Report 12548512 (Version 1)
Quarter: 2016Q3

REPORT INFORMATION
  Report Type: Spontaneous
  Country: HR (occurrence: HR)
  Receive Date: 20160712
  Receipt Date: 20160712
  Transmission Date: 20161109
  Serious: Yes (Other)
  Sender: FDA-Public Use
  Company Number: HR-ACTAVIS-2016-15013

PATIENT
  Age: 62 Year
  Sex: Female
  Weight: 76 kg

DRUGS (6)
  1. SINDAXEL [Suspect]
     Active Substance: PACLITAXEL
     Indication: BREAST CANCER
     Dosage: UNK UNK, CYCLICAL
     Route: 042
     Dates: start: 20160602, end: 20160602
  2. ARNETIN [Concomitant]
     Indication: BREAST CANCER
     Dosage: 25 MG, UNKNOWN
     Route: 042
     Dates: start: 20160525, end: 20160525
  3. PACLITAXEL PLIVA [Suspect]
     Active Substance: PACLITAXEL
     Indication: BREAST CANCER
     Dosage: UNK UNK, CYCLICAL
     Route: 042
     Dates: start: 20160530, end: 20160530
  4. SETRONON [Suspect]
     Active Substance: ONDANSETRON HYDROCHLORIDE
     Indication: BREAST CANCER
     Dosage: 28 MG, UNKNOWN
     Route: 042
     Dates: start: 20160525, end: 20160525
  5. DEXAMETHASON                       /00016001/ [Concomitant]
     Active Substance: DEXAMETHASONE
     Indication: BREAST CANCER
     Dosage: 20 MG, UNKNOWN
     Route: 042
     Dates: start: 20160525, end: 20160525
  6. PACLITAXEL PLIVA [Suspect]
     Active Substance: PACLITAXEL
     Dosage: UNK UNK, CYCLICAL
     Route: 042
     Dates: start: 20160525, end: 20160525

REACTIONS (2)
  - Blood pressure decreased [Recovered/Resolved]
  - Asphyxia [Recovered/Resolved]

NARRATIVE: CASE EVENT DATE: 20160525
